FAERS Safety Report 16326600 (Version 2)
Quarter: 2019Q2

REPORT INFORMATION
  Report Type: Spontaneous
  Country: ES (occurrence: ES)
  Receive Date: 20190517
  Receipt Date: 20190521
  Transmission Date: 20190711
  Serious: Yes (Hospitalization, Disabling)
  Sender: FDA-Public Use
  Company Number: ES-009507513-1905ESP006095

PATIENT
  Age: 57 Year
  Sex: Male

DRUGS (10)
  1. ABASAGLAR [Concomitant]
     Active Substance: INSULIN GLARGINE
     Dosage: 38 INTERNATIONAL UNIT, QD; STRENGTH 100 UNITS/ML INJECTABLE SOLUTION IN PREFILLED PEN, 5 PREFILLED P
     Route: 058
  2. ADIRO [Concomitant]
     Active Substance: ASPIRIN
     Dosage: 100 MILLIGRAM, QD; GASTRO-RESISTANT TABLETS GENERIC, 30 TABLETS (POLIPROPILEN - ALUMINIUM)
     Route: 048
  3. GENTAMICIN. [Suspect]
     Active Substance: GENTAMICIN
     Indication: PSEUDOMONAL BACTERAEMIA
     Dosage: 500 MILLIGRAM, QD
     Route: 042
     Dates: start: 20190209, end: 20190221
  4. ZERBAXA [Suspect]
     Active Substance: CEFTOLOZANE SULFATE\TAZOBACTAM SODIUM
     Indication: DIABETIC FOOT
  5. PANTECTA [Concomitant]
     Active Substance: PANTOPRAZOLE SODIUM
     Dosage: 40 MILLIGRAM, QD
     Route: 048
  6. EMCONCOR [Concomitant]
     Active Substance: BISOPROLOL FUMARATE
     Dosage: 2.5 MILLIGRAM, QD
     Route: 048
  7. EUCREAS [Concomitant]
     Active Substance: METFORMIN HYDROCHLORIDE\VILDAGLIPTIN
     Dosage: 1 DOSAGE FORM, QD
     Route: 048
  8. ATORVASTATIN [Concomitant]
     Active Substance: ATORVASTATIN
     Dosage: 40 MILLIGRAM, QD; 7400A
     Route: 048
  9. ZERBAXA [Suspect]
     Active Substance: CEFTOLOZANE SULFATE\TAZOBACTAM SODIUM
     Indication: PSEUDOMONAL BACTERAEMIA
     Dosage: 1 DOSAGE FORM, EVERY 8 HOURS
     Route: 042
     Dates: start: 20190207, end: 20190227
  10. NOVORAPID [Concomitant]
     Active Substance: INSULIN ASPART
     Dosage: 4 INTERNATIONAL UNIT, QD; STRENGTH: 100 U/ML, INJECTABLE SOLUTION IN PREFILLED PEN, 5 PREFILLED PENS
     Route: 058

REACTIONS (4)
  - Leg amputation [Unknown]
  - Nephropathy toxic [Recovered/Resolved]
  - Product use in unapproved indication [Unknown]
  - Acute kidney injury [Recovering/Resolving]

NARRATIVE: CASE EVENT DATE: 20190219
